FAERS Safety Report 23807569 (Version 2)
Quarter: 2024Q2

REPORT INFORMATION
  Report Type: Spontaneous
  Country: AU (occurrence: AU)
  Receive Date: 20240502
  Receipt Date: 20240521
  Transmission Date: 20240716
  Serious: Yes (Hospitalization, Other)
  Sender: FDA-Public Use
  Company Number: AU-SUN PHARMACEUTICAL INDUSTRIES LTD-2024R1-443640

PATIENT
  Age: 67 Year
  Sex: Male

DRUGS (18)
  1. BUDESONIDE [Interacting]
     Active Substance: BUDESONIDE
     Indication: Graft versus host disease
     Dosage: 3 MILLIGRAM, TID
     Route: 065
     Dates: start: 2023
  2. BUDESONIDE [Interacting]
     Active Substance: BUDESONIDE
     Dosage: UNK (DOSE TAPERED)
     Route: 065
     Dates: end: 202305
  3. METHYLPREDNISOLONE [Suspect]
     Active Substance: METHYLPREDNISOLONE
     Indication: Graft versus host disease
     Dosage: UNK
     Route: 042
     Dates: start: 2023, end: 2023
  4. METHYLPREDNISOLONE [Suspect]
     Active Substance: METHYLPREDNISOLONE
     Dosage: 2 MILLIGRAM/KILOGRAM
     Route: 042
     Dates: start: 2023, end: 2023
  5. METHYLPREDNISOLONE [Suspect]
     Active Substance: METHYLPREDNISOLONE
     Dosage: 1-1.25 MILLIGRAM/KILOGRAM
     Route: 042
     Dates: start: 2023, end: 2023
  6. PREDNISOLONE [Suspect]
     Active Substance: PREDNISOLONE
     Indication: Graft versus host disease
     Dosage: 100 MILLIGRAM
     Route: 048
     Dates: start: 202302
  7. PREDNISOLONE [Suspect]
     Active Substance: PREDNISOLONE
     Dosage: 75 MILLIGRAM
     Route: 048
     Dates: start: 202302
  8. PREDNISOLONE [Suspect]
     Active Substance: PREDNISOLONE
     Dosage: 50 MILLIGRAM
     Route: 048
     Dates: start: 202302
  9. PREDNISOLONE [Suspect]
     Active Substance: PREDNISOLONE
     Dosage: 25 MILLIGRAM
     Route: 048
     Dates: start: 202302
  10. PREDNISOLONE [Suspect]
     Active Substance: PREDNISOLONE
     Dosage: 12.5 MILLIGRAM
     Route: 048
     Dates: start: 202303
  11. PREDNISOLONE [Suspect]
     Active Substance: PREDNISOLONE
     Dosage: 10 MILLIGRAM
     Route: 048
     Dates: start: 202303
  12. PREDNISOLONE [Suspect]
     Active Substance: PREDNISOLONE
     Dosage: 5 MILLIGRAM
     Route: 048
     Dates: start: 202303, end: 202303
  13. CYCLOSPORINE [Suspect]
     Active Substance: CYCLOSPORINE
     Indication: Graft versus host disease
     Dosage: 200 MILLIGRAM, BID
     Route: 065
     Dates: end: 202303
  14. POSACONAZOLE [Interacting]
     Active Substance: POSACONAZOLE
     Indication: Antifungal prophylaxis
     Dosage: 300 MILLIGRAM
     Route: 048
     Dates: start: 2023
  15. POSACONAZOLE [Interacting]
     Active Substance: POSACONAZOLE
     Indication: Graft versus host disease
  16. VALGANCICLOVIR [Suspect]
     Active Substance: VALGANCICLOVIR
     Indication: Antiviral treatment
     Dosage: UNK
     Route: 065
     Dates: start: 2023
  17. VENETOCLAX [Suspect]
     Active Substance: VENETOCLAX
     Indication: Acute myeloid leukaemia
     Dosage: UNK
     Route: 065
  18. VENETOCLAX [Suspect]
     Active Substance: VENETOCLAX
     Indication: Graft versus host disease

REACTIONS (9)
  - Cushing^s syndrome [Unknown]
  - Tertiary adrenal insufficiency [Unknown]
  - Drug level increased [Unknown]
  - Drug interaction [Unknown]
  - Cytomegalovirus infection reactivation [Unknown]
  - Type 2 diabetes mellitus [Unknown]
  - Myelosuppression [Unknown]
  - BK virus infection [Unknown]
  - Cystitis viral [Unknown]

NARRATIVE: CASE EVENT DATE: 20230101
